FAERS Safety Report 16056113 (Version 2)
Quarter: 2025Q4

REPORT INFORMATION
  Report Type: Spontaneous
  Country: EU (occurrence: EU)
  Receive Date: 20190311
  Receipt Date: 20251111
  Transmission Date: 20260117
  Serious: Yes (Death, Other)
  Sender: AUROBINDO
  Company Number: EU-AUROBINDO-AUR-APL-2019-012314

PATIENT
  Age: 53 Year
  Sex: Male

DRUGS (1)
  1. ENTECAVIR [Suspect]
     Active Substance: ENTECAVIR
     Indication: HIV infection
     Dosage: UNK
     Route: 065

REACTIONS (3)
  - Acute hepatic failure [Fatal]
  - Condition aggravated [Unknown]
  - HIV infection [Unknown]
